FAERS Safety Report 15719386 (Version 4)
Quarter: 2019Q1

REPORT INFORMATION
  Report Type: Spontaneous
  Country: JP (occurrence: JP)
  Receive Date: 20181213
  Receipt Date: 20190215
  Transmission Date: 20190417
  Serious: Yes (Hospitalization, Other)
  Sender: FDA-Public Use
  Company Number: JP-BAYER-2018-215027

PATIENT
  Age: 72 Year
  Sex: Male
  Weight: 65.9 kg

DRUGS (10)
  1. BAYASPIRIN 100 MG [Suspect]
     Active Substance: ASPIRIN
     Dosage: DAILY DOSE 1 DF
     Route: 048
  2. CARVEDILOL. [Concomitant]
     Active Substance: CARVEDILOL
     Dosage: DAILY DOSE 1 DF
     Route: 048
  3. IRBESARTAN OD [Concomitant]
     Dosage: DAILY DOSE 1 DF
     Route: 048
  4. SAMSCA [Concomitant]
     Active Substance: TOLVAPTAN
     Dosage: DAILY DOSE 1 DF
     Route: 048
  5. FUROSEMIDE. [Concomitant]
     Active Substance: FUROSEMIDE
     Dosage: DAILY DOSE 1 DF
     Route: 048
  6. STIVARGA [Suspect]
     Active Substance: REGORAFENIB
     Indication: GASTROINTESTINAL STROMAL TUMOUR
     Dosage: CONTINUE FOR 3 WEEKS AND THEN STOP FOR 1 WEEK, DAILY DOSE 80 MG
     Route: 048
     Dates: start: 20181129
  7. STIVARGA [Suspect]
     Active Substance: REGORAFENIB
     Indication: GASTROINTESTINAL STROMAL TUMOUR
     Dosage: CONTINUE FOR 3 WEEKS AND THEN STOP FOR 1 WEEK , 160 MG, QD
     Route: 048
     Dates: start: 20181115, end: 20181116
  8. AMLODIPINE [Concomitant]
     Active Substance: AMLODIPINE BESYLATE
     Dosage: DAILY DOSE 1 DF
     Route: 048
  9. CARDENALIN [Concomitant]
     Active Substance: DOXAZOSIN MESYLATE
     Dosage: DAILY DOSE 1 DF
     Route: 048
  10. CEFTRIAXONE NA [Concomitant]
     Active Substance: CEFTRIAXONE

REACTIONS (7)
  - Tumour rupture [Recovered/Resolved]
  - Tumour haemorrhage [Recovered/Resolved]
  - Inflammatory marker increased [Recovered/Resolved]
  - Ascites [Recovered/Resolved]
  - Small intestinal haemorrhage [Recovered/Resolved]
  - Haemoglobin decreased [Recovered/Resolved]
  - Abdominal pain lower [Recovered/Resolved]

NARRATIVE: CASE EVENT DATE: 20181115
